FAERS Safety Report 11800565 (Version 2)
Quarter: 2015Q4

REPORT INFORMATION
  Report Type: Report from Study
  Country: CA (occurrence: CA)
  Receive Date: 20151204
  Receipt Date: 20151214
  Transmission Date: 20160305
  Serious: Yes (Hospitalization, Other)
  Sender: FDA-Public Use
  Company Number: CA-AMGEN-CANSL2015127272

PATIENT
  Age: 81 Year
  Sex: Female

DRUGS (1)
  1. PROLIA [Suspect]
     Active Substance: DENOSUMAB
     Indication: OSTEOPOROSIS POSTMENOPAUSAL
     Dosage: 60 MG, Q6MO
     Route: 058
     Dates: start: 20140626

REACTIONS (6)
  - Aortic valve replacement [Unknown]
  - Pulmonary oedema [Unknown]
  - Pneumonia viral [Unknown]
  - Coeliac disease [Unknown]
  - Groin abscess [Unknown]
  - Fall [Unknown]

NARRATIVE: CASE EVENT DATE: 2014
